FAERS Safety Report 21687589 (Version 1)
Quarter: 2022Q4

REPORT INFORMATION
  Report Type: Report from Study
  Country: US (occurrence: US)
  Receive Date: 20221206
  Receipt Date: 20221206
  Transmission Date: 20230112
  Serious: No
  Sender: FDA-Public Use
  Company Number: US-ABBVIE-4176156

PATIENT
  Sex: Female

DRUGS (2)
  1. HUMIRA [Suspect]
     Active Substance: ADALIMUMAB
     Indication: Hidradenitis
     Dosage: STRENGTH 40 MG
     Route: 058
     Dates: start: 202206
  2. HUMIRA [Suspect]
     Active Substance: ADALIMUMAB
     Dosage: STRENGTH 40 MG
     Route: 058

REACTIONS (4)
  - Immunodeficiency [Recovering/Resolving]
  - Ear infection [Not Recovered/Not Resolved]
  - Hidradenitis [Not Recovered/Not Resolved]
  - Nasopharyngitis [Unknown]
